FAERS Safety Report 10362640 (Version 2)
Quarter: 2014Q3

REPORT INFORMATION
  Report Type: Report from Study
  Country: KR (occurrence: KR)
  Receive Date: 20140805
  Receipt Date: 20140923
  Transmission Date: 20150326
  Serious: Yes (Hospitalization)
  Sender: FDA-Public Use
  Company Number: KR-SA-2014SA102113

PATIENT
  Age: 76 Year
  Sex: Female
  Weight: 69 kg

DRUGS (4)
  1. MULTAQ [Suspect]
     Active Substance: DRONEDARONE
     Indication: ATRIAL FIBRILLATION
     Route: 065
     Dates: start: 20131129
  2. PLAVIX [Concomitant]
     Active Substance: CLOPIDOGREL BISULFATE
     Dates: start: 2013, end: 20131226
  3. ASPIRIN. [Concomitant]
     Active Substance: ASPIRIN
     Dates: start: 2013
  4. CRESTOR [Concomitant]
     Active Substance: ROSUVASTATIN CALCIUM
     Indication: ANGINA PECTORIS
     Dates: start: 20131101

REACTIONS (1)
  - Open fracture [Recovered/Resolved]

NARRATIVE: CASE EVENT DATE: 20140504
